FAERS Safety Report 16240191 (Version 1)
Quarter: 2019Q2

REPORT INFORMATION
  Report Type: Spontaneous
  Country: CN (occurrence: CN)
  Receive Date: 20190425
  Receipt Date: 20190425
  Transmission Date: 20190711
  Serious: Yes (Hospitalization)
  Sender: FDA-Public Use
  Company Number: CN-009507513-1904CHN008546

PATIENT
  Age: 73 Year
  Sex: Male
  Weight: 46.5 kg

DRUGS (12)
  1. IMIPENEM AND CILASTATIN [Suspect]
     Active Substance: CILASTATIN SODIUM\IMIPENEM
     Dosage: 1 GRAM, QD
     Route: 042
     Dates: start: 20190405
  2. MOXIFLOXACIN. [Suspect]
     Active Substance: MOXIFLOXACIN
     Dosage: 0.4 GRAM, Q24H
     Route: 048
  3. IMIPENEM AND CILASTATIN [Suspect]
     Active Substance: CILASTATIN SODIUM\IMIPENEM
     Dosage: 1 GRAM, Q8H
     Route: 042
     Dates: start: 20190330, end: 20190403
  4. ACETYLCYSTEINE. [Suspect]
     Active Substance: ACETYLCYSTEINE
     Indication: PRODUCTIVE COUGH
     Dosage: 600 MILLIGRAM, QD
     Route: 048
     Dates: start: 20190327, end: 20190402
  5. AMINOPYRINE (+) ANTIPYRINE (+) PHENOBARBITA [Suspect]
     Active Substance: AMINOPHENAZONE\ANTIPYRINE\BARBITAL
     Dosage: 1-2 ML
     Route: 030
     Dates: start: 20190308, end: 20190322
  6. AMINOPYRINE (+) ANTIPYRINE (+) PHENOBARBITA [Suspect]
     Active Substance: AMINOPHENAZONE\ANTIPYRINE\BARBITAL
     Dosage: 1-2 ML
     Route: 030
     Dates: start: 20190331, end: 20190331
  7. CANCIDAS [Suspect]
     Active Substance: CASPOFUNGIN ACETATE
     Indication: CACHEXIA
     Dosage: THE FIRST DOSE WAS 70 MG
     Route: 042
     Dates: start: 20190329, end: 20190329
  8. CEFUROXIME AXETIL. [Suspect]
     Active Substance: CEFUROXIME AXETIL
     Indication: INFECTION
     Dosage: 0.5 GRAM, BID
     Route: 048
     Dates: start: 20190323, end: 20190325
  9. AMINOPYRINE (+) ANTIPYRINE (+) PHENOBARBITA [Suspect]
     Active Substance: AMINOPHENAZONE\ANTIPYRINE\BARBITAL
     Indication: FEBRILE INFECTION
     Dosage: 1-2 ML
     Route: 030
     Dates: start: 20190307
  10. AMINOPYRINE (+) ANTIPYRINE (+) PHENOBARBITA [Suspect]
     Active Substance: AMINOPHENAZONE\ANTIPYRINE\BARBITAL
     Dosage: 1-2 ML
     Route: 030
     Dates: start: 20190322, end: 20190322
  11. CANCIDAS [Suspect]
     Active Substance: CASPOFUNGIN ACETATE
     Dosage: 50 MILLIGRAM, QD (THE FIRST DOSE WAS 70MG).)
     Route: 042
     Dates: start: 20190330, end: 20190403
  12. IMIPENEM AND CILASTATIN [Suspect]
     Active Substance: CILASTATIN SODIUM\IMIPENEM
     Indication: INFECTION
     Dosage: 1 GRAM, Q8H
     Route: 042
     Dates: start: 201903, end: 20190312

REACTIONS (4)
  - Henoch-Schonlein purpura [Recovered/Resolved]
  - Productive cough [Unknown]
  - Pyrexia [Unknown]
  - Drug ineffective [Unknown]

NARRATIVE: CASE EVENT DATE: 201903
